FAERS Safety Report 18290739 (Version 1)
Quarter: 2020Q3

REPORT INFORMATION
  Report Type: Spontaneous
  Country: US (occurrence: US)
  Receive Date: 20200921
  Receipt Date: 20200921
  Transmission Date: 20201103
  Serious: Yes (Hospitalization, Other)
  Sender: FDA-Public Use
  Company Number: US-PFIZER INC-2020361142

PATIENT
  Age: 76 Year
  Sex: Male
  Weight: 62.8 kg

DRUGS (1)
  1. VYNDAQEL [Suspect]
     Active Substance: TAFAMIDIS MEGLUMINE
     Dosage: 80 MG, 1X/DAY (4 X 20MG CAPS ONCE DAILY)

REACTIONS (4)
  - Acute kidney injury [Unknown]
  - Pneumonia aspiration [Unknown]
  - Fall [Unknown]
  - Effusion [Unknown]

NARRATIVE: CASE EVENT DATE: 20200831
